FAERS Safety Report 10010074 (Version 1)
Quarter: 2014Q1

REPORT INFORMATION
  Report Type: Spontaneous
  Country: US (occurrence: US)
  Receive Date: 20140312
  Receipt Date: 20140312
  Transmission Date: 20141002
  Serious: No
  Sender: FDA-Public Use
  Company Number: US-INCYTE CORPORATION-2013IN001583

PATIENT
  Sex: Male

DRUGS (5)
  1. JAKAFI [Suspect]
     Indication: MYELOFIBROSIS
     Dosage: 10 MG, BID
     Route: 048
     Dates: start: 20120514
  2. FUROSEMIDE [Concomitant]
     Dosage: 20 MG, UNK
  3. GLIMEPIRIDE [Concomitant]
     Dosage: 1 UNK, UNK
  4. CARVEDILOL [Concomitant]
     Dosage: 12.5 UNK, UNK
  5. DOXEPIN [Concomitant]
     Dosage: 25 MG, UNK

REACTIONS (1)
  - Pain [Unknown]
